FAERS Safety Report 6216635-X (Version None)
Quarter: 2009Q2

REPORT INFORMATION
  Report Type: 
  Country: None (occurrence: None)
  Receive Date: 20090605
  Receipt Date: 20090602
  Transmission Date: 20091009
  Serious: Yes (Death, Hospitalization)
  Sender: FDA-Public Use
  Company Number: PHEH2009US05677

PATIENT
  Age: 37 Year
  Sex: Male

DRUGS (2)
  1. EXJADE [Suspect]
     Indication: ACUTE LYMPHOCYTIC LEUKAEMIA
     Dosage: 1125 MG, QD
     Route: 048
     Dates: start: 20090318
  2. EXJADE [Suspect]
     Indication: IRON OVERLOAD

REACTIONS (2)
  - FEBRILE NEUTROPENIA [None]
  - LEUKOCYTOSIS [None]
